FAERS Safety Report 9493509 (Version 1)
Quarter: 2013Q3

REPORT INFORMATION
  Report Type: Spontaneous
  Country: US (occurrence: US)
  Receive Date: 20130902
  Receipt Date: 20130902
  Transmission Date: 20140515
  Serious: Yes (Other)
  Sender: FDA-Public Use
  Company Number: US-PFIZER INC-2013250670

PATIENT
  Age: 54 Year
  Sex: Female

DRUGS (1)
  1. RAPAMUNE [Suspect]
     Indication: JOINT PROSTHESIS USER
     Dosage: 1 MG, UNK
     Dates: start: 19901102

REACTIONS (4)
  - Interstitial lung disease [Unknown]
  - Pyrexia [Unknown]
  - Culture negative [Unknown]
  - Off label use [Unknown]
